FAERS Safety Report 5939565-7 (Version None)
Quarter: 2008Q4

REPORT INFORMATION
  Report Type: 
  Country: None (occurrence: None)
  Receive Date: 20081030
  Receipt Date: 20081020
  Transmission Date: 20090506
  Serious: Yes (Hospitalization)
  Sender: FDA-Public Use
  Company Number: 100#08#2008-05367

PATIENT
  Age: 29 Year
  Sex: Female

DRUGS (7)
  1. ETHAMBUTOL HCL [Suspect]
     Indication: TUBERCULOSIS
     Dates: start: 20040325
  2. RIFAMPICIN [Suspect]
     Indication: TUBERCULOSIS
     Dates: start: 20040325
  3. AZATHIOPRINE [Suspect]
     Indication: ALANINE AMINOTRANSFERASE ABNORMAL
     Dates: start: 20070827
  4. ISONIAZID [Suspect]
     Indication: TUBERCULOSIS
     Dates: start: 20040325
  5. PYRAZINAMIDE [Suspect]
     Indication: TUBERCULOSIS
     Dates: start: 20040325
  6. CELECOXIB [Suspect]
     Indication: ARTHRITIS
     Dates: start: 20040317
  7. SECOND-LINE ANTITUBERCULARS [Concomitant]

REACTIONS (24)
  - ACID FAST BACILLI INFECTION [None]
  - ALANINE AMINOTRANSFERASE ABNORMAL [None]
  - DRUG RASH WITH EOSINOPHILIA AND SYSTEMIC SYMPTOMS [None]
  - DRUG TOXICITY [None]
  - DYSPHAGIA [None]
  - DYSPNOEA [None]
  - HEPATIC FUNCTION ABNORMAL [None]
  - HEPATOMEGALY [None]
  - JAUNDICE [None]
  - LIVER TENDERNESS [None]
  - LYMPHADENOPATHY [None]
  - MARROW HYPERPLASIA [None]
  - MUSCLE NECROSIS [None]
  - MUSCULAR WEAKNESS [None]
  - MYALGIA [None]
  - OCULAR ICTERUS [None]
  - OROPHARYNGEAL PAIN [None]
  - PERITONEAL EFFUSION [None]
  - PHARYNGEAL DISORDER [None]
  - PLEURAL EFFUSION [None]
  - POLYMYOSITIS [None]
  - PULMONARY GRANULOMA [None]
  - SKIN TEST POSITIVE [None]
  - SPUTUM CULTURE POSITIVE [None]
